FAERS Safety Report 7706087-2 (Version None)
Quarter: 2011Q3

REPORT INFORMATION
  Report Type: 
  Country: None (occurrence: None)
  Receive Date: 20110824
  Receipt Date: 20110815
  Transmission Date: 20111222
  Serious: Yes (Other)
  Sender: FDA-Public Use
  Company Number: US-ABBOTT-11P-163-0847361-00

PATIENT
  Age: 65 Year
  Sex: Male
  Weight: 81.72 kg

DRUGS (4)
  1. ANDROGEL [Suspect]
     Indication: BLOOD TESTOSTERONE DECREASED
     Dosage: 2 PUMPS ONCE DAILY
     Route: 061
     Dates: start: 20090801
  2. ALLERGY INJECTIONS [Concomitant]
     Indication: HYPERSENSITIVITY
     Dates: end: 20100101
  3. ZOLOFT [Concomitant]
     Indication: DEPRESSION
     Dosage: ON AND OFF MEDICATION
  4. CLARINEX [Concomitant]
     Indication: HYPERSENSITIVITY

REACTIONS (7)
  - LARGE INTESTINE PERFORATION [None]
  - BIPOLAR DISORDER [None]
  - PROCEDURAL COMPLICATION [None]
  - PROSTATIC SPECIFIC ANTIGEN INCREASED [None]
  - AFFECT LABILITY [None]
  - LARGE INTESTINAL HAEMORRHAGE [None]
  - DEPRESSION [None]
